FAERS Safety Report 7049451-X (Version None)
Quarter: 2010Q4

REPORT INFORMATION
  Report Type: 
  Country: None (occurrence: None)
  Receive Date: 20101012
  Receipt Date: 20100922
  Transmission Date: 20110411
  Serious: Yes (Life-Threatening, Hospitalization)
  Sender: FDA-Public Use
  Company Number: AE-2009-028

PATIENT
  Age: 82 Year
  Sex: Male
  Weight: 77 kg

DRUGS (9)
  1. METOPROLOL TARTRATE [Suspect]
     Indication: HYPERTENSION
     Dosage: 95 MG BID, ORAL
     Route: 048
  2. INSULIN HUMAN [Suspect]
     Indication: TYPE 2 DIABETES MELLITUS
     Dosage: 16 IU QD, SUBCUTANEOUS
     Route: 058
     Dates: start: 19910101
  3. INSULIN HUMAN INJECTION, ISOPHANE [Suspect]
     Indication: TYPE 2 DIABETES MELLITUS
     Dosage: ^30-0-26^ IU, SUBCUTANEOUS
     Route: 058
     Dates: start: 19910101
  4. MOXONIDINE [Concomitant]
  5. LERCANIDIPINE [Concomitant]
  6. DOXAZOSIN MESYLATE [Concomitant]
  7. HYDROCHLOROTHIAZIDE [Concomitant]
  8. SIMVASTATIN [Concomitant]
  9. CANDESARTAN CILEXETIL [Concomitant]

REACTIONS (1)
  - SHOCK HYPOGLYCAEMIC [None]
